FAERS Safety Report 15819210 (Version 1)
Quarter: 2019Q1

REPORT INFORMATION
  Report Type: Spontaneous
  Country: US (occurrence: US)
  Receive Date: 20190114
  Receipt Date: 20190114
  Transmission Date: 20190417
  Serious: No
  Sender: FDA-Public Use
  Company Number: US-ROCHE-2057018

PATIENT
  Sex: Male
  Weight: 18.14 kg

DRUGS (3)
  1. GENOTROPIN [Suspect]
     Active Substance: SOMATROPIN
     Indication: GROWTH HORMONE DEFICIENCY
     Dosage: PEN, CATRIDGE
     Route: 065
     Dates: start: 201708
  2. NUTROPIN [Suspect]
     Active Substance: SOMATROPIN
     Indication: GROWTH HORMONE DEFICIENCY
     Route: 065
     Dates: start: 201702
  3. NUTROPIN [Suspect]
     Active Substance: SOMATROPIN
     Dosage: ONGOING: NO
     Route: 065
     Dates: end: 201708

REACTIONS (2)
  - Injection site pain [Unknown]
  - Product dose omission [Unknown]
